FAERS Safety Report 12159206 (Version 2)
Quarter: 2016Q1

REPORT INFORMATION
  Report Type: Report from Study
  Country: CA (occurrence: CA)
  Receive Date: 20160308
  Receipt Date: 20160323
  Transmission Date: 20160526
  Serious: Yes (Hospitalization, Other)
  Sender: FDA-Public Use
  Company Number: CA-BEH-2016059795

PATIENT
  Age: 45 Year
  Sex: Female

DRUGS (4)
  1. HIZENTRA [Suspect]
     Active Substance: HUMAN IMMUNOGLOBULIN G
     Dosage: 1 G VIAL
  2. HIZENTRA [Suspect]
     Active Substance: HUMAN IMMUNOGLOBULIN G
     Indication: IMMUNODEFICIENCY COMMON VARIABLE
     Dosage: 4 G VIALS
  3. HIZENTRA [Suspect]
     Active Substance: HUMAN IMMUNOGLOBULIN G
     Indication: PRIMARY IMMUNODEFICIENCY SYNDROME
     Dosage: 2 G VIAL
  4. HIZENTRA [Suspect]
     Active Substance: HUMAN IMMUNOGLOBULIN G
     Dosage: PUMP METHOD
     Route: 058

REACTIONS (8)
  - Coronary artery occlusion [Unknown]
  - Sinusitis [Unknown]
  - Sunburn [Unknown]
  - Urinary tract infection [Unknown]
  - Angioplasty [Unknown]
  - Ear infection [Unknown]
  - Swelling face [Unknown]
  - Cough [Unknown]

NARRATIVE: CASE EVENT DATE: 201601
